FAERS Safety Report 12336388 (Version 1)
Quarter: 2016Q2

REPORT INFORMATION
  Report Type: Spontaneous
  Country: GB (occurrence: GB)
  Receive Date: 20160505
  Receipt Date: 20160505
  Transmission Date: 20160815
  Serious: Yes (Hospitalization)
  Sender: FDA-Public Use
  Company Number: GB-AUROBINDO-AUR-APL-2016-05521

PATIENT
  Age: 41 Year

DRUGS (5)
  1. QUETIAPINE FILM-COATED TABLET [Suspect]
     Active Substance: QUETIAPINE
     Indication: PRODUCT USED FOR UNKNOWN INDICATION
     Dosage: 400 MG, ONCE A DAY AT NIGHT.
     Route: 048
     Dates: start: 201507
  2. GABAPENTIN 300MG [Suspect]
     Active Substance: GABAPENTIN
     Indication: PRODUCT USED FOR UNKNOWN INDICATION
     Dosage: 300 MG, 3 TIMES A DAY
     Route: 048
  3. METHADONE [Concomitant]
     Active Substance: METHADONE HYDROCHLORIDE
     Indication: PRODUCT USED FOR UNKNOWN INDICATION
     Dosage: 45 ML, ONCE A DAY
     Route: 048
  4. HEROIN [Concomitant]
     Active Substance: DIACETYLMORPHINE
     Indication: SUBSTANCE ABUSE
     Dosage: ONGOING
     Route: 065
  5. ALCOHOL. [Concomitant]
     Active Substance: ALCOHOL
     Indication: SUBSTANCE ABUSE
     Dosage: ONGOING
     Route: 065

REACTIONS (1)
  - Pancreatitis [Unknown]
